FAERS Safety Report 5620155-0 (Version None)
Quarter: 2008Q1

REPORT INFORMATION
  Report Type: 
  Country: None (occurrence: None)
  Receive Date: 20080208
  Receipt Date: 20080201
  Transmission Date: 20080703
  Serious: Yes (Hospitalization)
  Sender: FDA-Public Use
  Company Number: DE-AVENTIS-200710668DE

PATIENT
  Age: 59 Year
  Sex: Female
  Weight: 69 kg

DRUGS (5)
  1. DOCETAXEL [Suspect]
     Indication: BREAST CANCER
     Route: 042
     Dates: start: 20070131, end: 20070131
  2. GEMZAR [Suspect]
     Indication: BREAST CANCER
     Route: 042
     Dates: start: 20070131, end: 20070131
  3. GEMZAR [Suspect]
     Route: 042
     Dates: start: 20070207, end: 20070207
  4. ONDANSETRON [Concomitant]
     Route: 042
     Dates: start: 20070131, end: 20070131
  5. ONDANSETRON [Concomitant]
     Route: 042
     Dates: start: 20070207, end: 20070207

REACTIONS (3)
  - LARYNGITIS [None]
  - PNEUMONIA [None]
  - VOCAL CORD PARALYSIS [None]
